FAERS Safety Report 25516165 (Version 2)
Quarter: 2025Q3

REPORT INFORMATION
  Report Type: Spontaneous
  Country: US (occurrence: US)
  Receive Date: 20250704
  Receipt Date: 20250813
  Transmission Date: 20251020
  Serious: No
  Sender: BOEHRINGER INGELHEIM
  Company Number: US-Komodo Health-a23aa000008c3LFAAY

PATIENT
  Age: 82 Year
  Sex: Female

DRUGS (2)
  1. CYLTEZO [Suspect]
     Active Substance: ADALIMUMAB-ADBM
     Indication: Rheumatoid arthritis
     Dosage: 40 MG/0.4 MG PEN,
     Dates: end: 202505
  2. CYLTEZO [Suspect]
     Active Substance: ADALIMUMAB-ADBM

REACTIONS (3)
  - Dyskinesia [Recovered/Resolved]
  - Muscle spasms [Recovered/Resolved]
  - Muscular weakness [Recovered/Resolved]

NARRATIVE: CASE EVENT DATE: 20250428
